FAERS Safety Report 14182790 (Version 4)
Quarter: 2018Q2

REPORT INFORMATION
  Report Type: Spontaneous
  Country: JP (occurrence: JP)
  Receive Date: 20171113
  Receipt Date: 20180612
  Transmission Date: 20180711
  Serious: Yes (Hospitalization, Other)
  Sender: FDA-Public Use
  Company Number: JP-009507513-1705JPN002398J

PATIENT
  Age: 82 Year
  Sex: Male
  Weight: 59 kg

DRUGS (1)
  1. KEYTRUDA [Suspect]
     Active Substance: PEMBROLIZUMAB
     Indication: SQUAMOUS CELL CARCINOMA OF LUNG
     Dosage: 200 MG, Q3W
     Route: 041
     Dates: start: 20170412, end: 20170502

REACTIONS (7)
  - Weight decreased [Unknown]
  - Interstitial lung disease [Unknown]
  - Hypothalamo-pituitary disorder [Not Recovered/Not Resolved]
  - Dyspnoea [Unknown]
  - Thirst [Recovered/Resolved]
  - Decreased appetite [Recovered/Resolved]
  - Malignant neoplasm progression [Unknown]

NARRATIVE: CASE EVENT DATE: 2017
